FAERS Safety Report 8773004 (Version 4)
Quarter: 2012Q4

REPORT INFORMATION
  Report Type: 
  Country: VE (occurrence: VE)
  Receive Date: 20120907
  Receipt Date: 20121022
  Transmission Date: 20130627
  Serious: Yes (Other)
  Sender: FDA-Public Use
  Company Number: VE-PFIZER INC-2012218985

PATIENT
  Age: 58 Year
  Sex: Female

DRUGS (1)
  1. ZOLOFT [Suspect]
     Indication: ASTHENIA
     Dosage: 50 mg, 1x/day
     Route: 048
     Dates: start: 201207, end: 201207

REACTIONS (2)
  - Wound infection [Recovered/Resolved]
  - Hernia [Recovered/Resolved]
